FAERS Safety Report 6668189-1 (Version None)
Quarter: 2010Q2

REPORT INFORMATION
  Report Type: 
  Country: None (occurrence: None)
  Receive Date: 20100405
  Receipt Date: 20100405
  Transmission Date: 20101027
  Serious: Yes (Disabling)
  Sender: FDA-Public Use
  Company Number: None

PATIENT
  Age: 35 Year
  Sex: Female
  Weight: 49.8957 kg

DRUGS (1)
  1. MIRENA [Suspect]
     Indication: CONTRACEPTION
     Dates: start: 20061226, end: 20091015

REACTIONS (9)
  - ACNE [None]
  - ANGER [None]
  - BACK PAIN [None]
  - DEVICE DISLOCATION [None]
  - FATIGUE [None]
  - FEELING ABNORMAL [None]
  - MIGRAINE [None]
  - MYALGIA [None]
  - UTERINE PERFORATION [None]
